FAERS Safety Report 17270495 (Version 1)
Quarter: 2020Q1

REPORT INFORMATION
  Report Type: Spontaneous
  Country: US (occurrence: US)
  Receive Date: 20200114
  Receipt Date: 20200114
  Transmission Date: 20200409
  Serious: Yes (Life-Threatening)
  Sender: FDA-Public Use
  Company Number: GB-FRESENIUS KABI-FK202000395

PATIENT
  Age: 31 Year
  Sex: Male

DRUGS (5)
  1. DIPHENHYDRAMINE. [Concomitant]
     Active Substance: DIPHENHYDRAMINE
     Indication: FOOD ALLERGY
     Route: 065
  2. EPINEPHRINE. [Concomitant]
     Active Substance: EPINEPHRINE
     Indication: FOOD ALLERGY
     Route: 030
  3. HYDROCORTISONE. [Suspect]
     Active Substance: HYDROCORTISONE
     Indication: FOOD ALLERGY
     Route: 042
  4. METHYLPREDNISOLONE (MANUFACTURER UNKNOWN) [Suspect]
     Active Substance: METHYLPREDNISOLONE
     Indication: FOOD ALLERGY
     Route: 030
  5. EPINEPHRINE. [Concomitant]
     Active Substance: EPINEPHRINE
     Route: 041

REACTIONS (1)
  - Anaphylactic reaction [Recovered/Resolved]
